FAERS Safety Report 8983884 (Version 1)
Quarter: 2012Q4

REPORT INFORMATION
  Report Type: 
  Country: FR (occurrence: FR)
  Receive Date: 20121224
  Receipt Date: 20121224
  Transmission Date: 20130627
  Serious: Yes (Hospitalization)
  Sender: FDA-Public Use
  Company Number: FR-ROCHE-1173235

PATIENT
  Age: 37 Year
  Sex: Female

DRUGS (4)
  1. CELLCEPT [Suspect]
     Indication: PRODUCT USED FOR UNKNOWN INDICATION
     Route: 065
     Dates: start: 200909, end: 201210
  2. ENBREL [Suspect]
     Indication: RHEUMATOID ARTHRITIS
     Route: 058
     Dates: start: 201011, end: 201210
  3. CORTANCYL [Concomitant]
     Route: 048
  4. KARDEGIC [Concomitant]

REACTIONS (2)
  - Ruptured cerebral aneurysm [Recovering/Resolving]
  - Sepsis [Recovering/Resolving]
